FAERS Safety Report 18496315 (Version 3)
Quarter: 2021Q2

REPORT INFORMATION
  Report Type: Spontaneous
  Country: US (occurrence: US)
  Receive Date: 20201112
  Receipt Date: 20210604
  Transmission Date: 20210717
  Serious: No
  Sender: FDA-Public Use
  Company Number: US-PFIZER INC-2020444873

PATIENT
  Age: 69 Year
  Sex: Female
  Weight: 107.5 kg

DRUGS (2)
  1. PREMARIN [Suspect]
     Active Substance: ESTROGENS, CONJUGATED
     Indication: VULVOVAGINAL PAIN
     Dosage: UNK
     Dates: start: 202011
  2. PREMARIN [Suspect]
     Active Substance: ESTROGENS, CONJUGATED
     Indication: ATROPHIC VULVOVAGINITIS

REACTIONS (5)
  - Gait disturbance [Unknown]
  - Headache [Unknown]
  - Drug ineffective [Unknown]
  - Malaise [Unknown]
  - Visual impairment [Unknown]
